FAERS Safety Report 25073276 (Version 1)
Quarter: 2025Q1

REPORT INFORMATION
  Report Type: Spontaneous
  Country: US (occurrence: None)
  Receive Date: 20250312
  Receipt Date: 20250312
  Transmission Date: 20250408
  Serious: No
  Sender: FDA-CTU
  Company Number: None

PATIENT
  Sex: Female

DRUGS (3)
  1. AMBRISENTAN [Suspect]
     Active Substance: AMBRISENTAN
     Indication: Hypoplastic left heart syndrome
  2. ASPIRIN [Concomitant]
     Active Substance: ASPIRIN
  3. METAPROTERENOL SULFATE [Concomitant]
     Active Substance: METAPROTERENOL SULFATE

REACTIONS (4)
  - Off label use [None]
  - Hypoplastic left heart syndrome [None]
  - Wrong technique in product usage process [None]
  - Wrong technique in product usage process [None]
